FAERS Safety Report 22294935 (Version 1)
Quarter: 2023Q2

REPORT INFORMATION
  Report Type: Spontaneous
  Country: US (occurrence: None)
  Receive Date: 20230508
  Receipt Date: 20230508
  Transmission Date: 20230722
  Serious: No
  Sender: FDA-Public Use
  Company Number: US-INFO-20230064

PATIENT
  Sex: Female

DRUGS (1)
  1. ZOLEDRONIC ACID [Suspect]
     Active Substance: ZOLEDRONIC ACID
     Indication: Osteoporosis
     Dosage: NDC: 25021-830-82; EXPIRY DATE: 31-OCT-2023 ()
     Route: 040
     Dates: start: 20230419, end: 20230419

REACTIONS (2)
  - Tissue infiltration [Unknown]
  - Off label use [Unknown]

NARRATIVE: CASE EVENT DATE: 20230419
